FAERS Safety Report 4734779-6 (Version None)
Quarter: 2005Q3

REPORT INFORMATION
  Report Type: 
  Country: None (occurrence: None)
  Receive Date: 20050804
  Receipt Date: 20050729
  Transmission Date: 20060218
  Serious: Yes (Life-Threatening)
  Sender: FDA-Public Use
  Company Number: IT-GLAXOSMITHKLINE-B0389512A

PATIENT
  Age: 79 Year
  Sex: Female

DRUGS (3)
  1. LANOXIN [Suspect]
     Indication: CARDIAC FAILURE
     Dosage: .13MG PER DAY
     Route: 048
     Dates: start: 20050412, end: 20050719
  2. LISINOPRIL [Suspect]
     Indication: DRUG USE FOR UNKNOWN INDICATION
     Dosage: 20MG PER DAY
     Route: 048
     Dates: start: 20050412, end: 20050719
  3. SPIRONOLACTONE [Suspect]
     Indication: CARDIAC FAILURE
     Dosage: 100MG PER DAY
     Route: 048
     Dates: start: 20050412, end: 20050719

REACTIONS (3)
  - ATRIOVENTRICULAR BLOCK [None]
  - CIRCULATORY COLLAPSE [None]
  - VOMITING [None]
